FAERS Safety Report 24242328 (Version 1)
Quarter: 2024Q3

REPORT INFORMATION
  Report Type: Spontaneous
  Country: GB (occurrence: GB)
  Receive Date: 20240823
  Receipt Date: 20240823
  Transmission Date: 20241017
  Serious: Yes (Death, Other)
  Sender: EMD SERONO INC
  Company Number: GB-Merck Healthcare KGaA-2024045236

PATIENT
  Age: 77 Year
  Sex: Male

DRUGS (1)
  1. TEPOTINIB [Suspect]
     Active Substance: TEPOTINIB
     Indication: Product used for unknown indication
     Dates: start: 202401

REACTIONS (4)
  - Death [Fatal]
  - Ischaemic stroke [Unknown]
  - Colorectal cancer [Unknown]
  - Bone pain [Unknown]
